FAERS Safety Report 8364447-3 (Version None)
Quarter: 2012Q2

REPORT INFORMATION
  Report Type: 
  Country: None (occurrence: None)
  Receive Date: 20120516
  Receipt Date: 20120514
  Transmission Date: 20120825
  Serious: Yes (Other)
  Sender: FDA-Public Use
  Company Number: US-JNJFOC-20120504427

PATIENT
  Sex: Female
  Weight: 56.25 kg

DRUGS (7)
  1. INFLIXIMAB, RECOMBINANT [Suspect]
     Dosage: 37TH INFUSION
     Route: 042
     Dates: start: 20091002
  2. ALL OTHER THERAPEUTIC PRODUCTS [Concomitant]
     Indication: CROHN'S DISEASE
  3. CIMZIA [Concomitant]
     Indication: CROHN'S DISEASE
  4. METHOTREXATE [Concomitant]
     Indication: CROHN'S DISEASE
  5. ANTIDEPRESSANTS [Concomitant]
     Indication: CROHN'S DISEASE
  6. INFLIXIMAB, RECOMBINANT [Suspect]
     Indication: CROHN'S DISEASE
     Dosage: 36 INFUSIONS
     Route: 042
     Dates: start: 20020329
  7. COUMADIN [Concomitant]
     Indication: CROHN'S DISEASE

REACTIONS (1)
  - BASAL CELL CARCINOMA [None]
